FAERS Safety Report 10513159 (Version 3)
Quarter: 2014Q4

REPORT INFORMATION
  Report Type: Spontaneous
  Country: US (occurrence: US)
  Receive Date: 20141013
  Receipt Date: 20141114
  Transmission Date: 20150528
  Serious: Yes (Hospitalization)
  Sender: FDA-Public Use
  Company Number: US-ROCHE-1468411

PATIENT
  Sex: Female

DRUGS (21)
  1. KLONOPIN [Suspect]
     Active Substance: CLONAZEPAM
     Indication: ANXIETY DISORDER
     Dosage: START 10 YEARS, 4 PILLS A DAY
     Route: 065
     Dates: end: 2013
  2. KLONOPIN [Suspect]
     Active Substance: CLONAZEPAM
     Route: 048
     Dates: start: 2004
  3. REMERON SOLTAB [Concomitant]
     Active Substance: MIRTAZAPINE
     Indication: DEPRESSION
     Dosage: FOR 10 YEARS
     Route: 065
  4. PERCOCET [Concomitant]
     Active Substance: ACETAMINOPHEN\OXYCODONE HYDROCHLORIDE
     Indication: PAIN
  5. KLONOPIN [Suspect]
     Active Substance: CLONAZEPAM
     Dosage: SPLIT IN HALF WITH A PILL SPLITTER
     Route: 065
     Dates: start: 2013
  6. ASPIRIN. [Concomitant]
     Active Substance: ASPIRIN
     Route: 065
  7. INSULIN [Concomitant]
     Active Substance: INSULIN NOS
     Dosage: INDICATION: WAS NOT EATING.
     Route: 065
     Dates: start: 2005
  8. SERENTIL [Concomitant]
     Active Substance: MESORIDAZINE BESYLATE
     Indication: PSYCHOTIC DISORDER
     Dosage: START 15 YEARS AGO UNTIL TAKEN OFF THE MARKET
     Route: 065
  9. KLONOPIN [Suspect]
     Active Substance: CLONAZEPAM
     Route: 065
     Dates: start: 2013
  10. GEODON (UNITED STATES) [Concomitant]
     Indication: PSYCHOTIC DISORDER
     Dosage: 2 A DAY, START 3 YEARS AGO
     Route: 065
     Dates: end: 2014
  11. OXYCONTIN [Concomitant]
     Active Substance: OXYCODONE HYDROCHLORIDE
     Indication: PAIN
  12. KLONOPIN [Suspect]
     Active Substance: CLONAZEPAM
     Dosage: 05 EVERY 12 HOURS
     Route: 048
  13. ZIPRASIDONE HYDROCHLORIDE. [Concomitant]
     Active Substance: ZIPRASIDONE HYDROCHLORIDE
     Route: 065
  14. ELAVIL (UNITED STATES) [Concomitant]
  15. GEODON (UNITED STATES) [Concomitant]
     Dosage: 2 A DAY
     Route: 065
     Dates: start: 2014
  16. CLONAZEPAM. [Suspect]
     Active Substance: CLONAZEPAM
     Indication: ANXIETY DISORDER
     Dosage: A LONG TIME AGO FOR 5 MINUTES
     Route: 065
  17. NEXIUM [Concomitant]
     Active Substance: ESOMEPRAZOLE MAGNESIUM
     Indication: GASTROINTESTINAL DISORDER
  18. KLONOPIN [Suspect]
     Active Substance: CLONAZEPAM
     Route: 048
     Dates: start: 2012
  19. VALIUM [Suspect]
     Active Substance: DIAZEPAM
     Indication: PRODUCT USED FOR UNKNOWN INDICATION
     Route: 065
  20. GEODON (UNITED STATES) [Concomitant]
     Dosage: 2 A DAY, START 3 MONTHS AGO
     Route: 065
     Dates: start: 2014, end: 2014
  21. GEODON (UNITED STATES) [Concomitant]
     Dosage: 3 A DAY FOR A WEEK
     Route: 065
     Dates: start: 2014, end: 2014

REACTIONS (21)
  - Sedation [Recovered/Resolved]
  - Decreased appetite [Unknown]
  - Neck pain [Not Recovered/Not Resolved]
  - Incorrect dose administered [Unknown]
  - Fall [Recovered/Resolved]
  - Drug ineffective [Unknown]
  - Cachexia [Not Recovered/Not Resolved]
  - Aneurysm [Recovered/Resolved]
  - Visual impairment [Not Recovered/Not Resolved]
  - Hallucination [Recovered/Resolved]
  - Therapy change [Recovered/Resolved]
  - Drug dependence [Unknown]
  - Gait disturbance [Not Recovered/Not Resolved]
  - Face injury [Recovering/Resolving]
  - Vitamin B12 deficiency [Recovered/Resolved]
  - Psychotic disorder [Recovered/Resolved]
  - Muscle tightness [Not Recovered/Not Resolved]
  - Wound dehiscence [Unknown]
  - Pain in jaw [Not Recovered/Not Resolved]
  - Tooth loss [Not Recovered/Not Resolved]
  - Hemiparesis [Not Recovered/Not Resolved]

NARRATIVE: CASE EVENT DATE: 2005
